FAERS Safety Report 9356290 (Version 1)
Quarter: 2013Q2

REPORT INFORMATION
  Report Type: Spontaneous
  Country: TR (occurrence: TR)
  Receive Date: 20130619
  Receipt Date: 20130619
  Transmission Date: 20140414
  Serious: Yes (Other)
  Sender: FDA-Public Use
  Company Number: TR-BAUSCH-BL-2013-003665

PATIENT
  Age: 3 Month
  Sex: Female
  Weight: 4.54 kg

DRUGS (1)
  1. CYCLOPENTOLATE [Suspect]
     Indication: RETINAL LASER COAGULATION
     Dosage: 5 DROPS; OPHTHALMIC
     Route: 047

REACTIONS (2)
  - Incorrect dose administered [Unknown]
  - Anticholinergic syndrome [Recovered/Resolved]
